FAERS Safety Report 25477649 (Version 1)
Quarter: 2025Q2

REPORT INFORMATION
  Report Type: Spontaneous
  Country: US (occurrence: US)
  Receive Date: 20250625
  Receipt Date: 20250625
  Transmission Date: 20250716
  Serious: No
  Sender: ALCON
  Company Number: US-ALCON LABORATORIES-ALC2024US005266

PATIENT
  Age: 69 Year
  Sex: Female

DRUGS (1)
  1. PATADAY ONCE DAILY RELIEF [Suspect]
     Active Substance: OLOPATADINE HYDROCHLORIDE
     Indication: Product used for unknown indication
     Route: 047

REACTIONS (3)
  - Foreign body in eye [Recovered/Resolved]
  - Ocular discomfort [Recovered/Resolved]
  - Product dispensing issue [Unknown]

NARRATIVE: CASE EVENT DATE: 20241202
